FAERS Safety Report 6647681-X (Version None)
Quarter: 2010Q1

REPORT INFORMATION
  Report Type: 
  Country: None (occurrence: None)
  Receive Date: 20100323
  Receipt Date: 20100323
  Transmission Date: 20100710
  Serious: Yes (Death, Hospitalization, Other)
  Sender: FDA-Public Use
  Company Number: None

PATIENT
  Age: 77 Year
  Sex: Male
  Weight: 70.3075 kg

DRUGS (1)
  1. PLAVIX [Suspect]
     Dosage: ONCE A DAY BY MOUTH
     Route: 048

REACTIONS (5)
  - COLLAPSE OF LUNG [None]
  - PNEUMONIA [None]
  - SEPTIC SHOCK [None]
  - SUDDEN DEATH [None]
  - THROMBOSIS [None]
